FAERS Safety Report 4370820-0 (Version None)
Quarter: 2004Q2

REPORT INFORMATION
  Report Type: 
  Country: None (occurrence: None)
  Receive Date: 20040601
  Receipt Date: 20040519
  Transmission Date: 20050107
  Serious: Yes (Hospitalization)
  Sender: FDA-Public Use
  Company Number: A044-002-005012

PATIENT
  Age: 78 Year
  Sex: Female

DRUGS (4)
  1. ARICEPT [Suspect]
     Indication: DEMENTIA ALZHEIMER'S TYPE
     Dosage: ORAL
     Route: 048
  2. DEPAKENE [Concomitant]
  3. TIANEPTINE (TIANEOTINE) [Concomitant]
  4. CLOPIDOGREL (CLOPIDOGREL) [Concomitant]

REACTIONS (3)
  - BRONCHITIS [None]
  - OVERDOSE [None]
  - PARKINSON'S DISEASE [None]
